FAERS Safety Report 4303580-X (Version None)
Quarter: 2004Q1

REPORT INFORMATION
  Report Type: 
  Country: None (occurrence: None)
  Receive Date: 20040223
  Receipt Date: 20040210
  Transmission Date: 20041129
  Serious: Yes (Death)
  Sender: FDA-Public Use
  Company Number: USA-2004-0013022

PATIENT
  Age: 78 Year
  Sex: Male

DRUGS (6)
  1. SPECTRACEF [Suspect]
     Indication: PNEUMONIA
     Dosage: 400 MG, BID, ORAL
     Route: 048
     Dates: start: 20040116
  2. DILAUDID [Concomitant]
  3. COUMADIN [Concomitant]
  4. CARDURA [Concomitant]
  5. TAXOL [Concomitant]
  6. CARBOPLATIN [Concomitant]

REACTIONS (3)
  - CLOSTRIDIUM COLITIS [None]
  - MALIGNANT NEOPLASM PROGRESSION [None]
  - NON-SMALL CELL LUNG CANCER STAGE IV [None]
